FAERS Safety Report 15570066 (Version 1)
Quarter: 2018Q4

REPORT INFORMATION
  Report Type: Spontaneous
  Country: FR (occurrence: FR)
  Receive Date: 20181031
  Receipt Date: 20181031
  Transmission Date: 20190205
  Serious: Yes (Hospitalization, Other)
  Sender: FDA-Public Use
  Company Number: FR-AUROBINDO-AUR-APL-2018-051715

PATIENT
  Age: 75 Year
  Sex: Female

DRUGS (7)
  1. METHYLPREDNISOLONE MYLAN           /00049604/ [Suspect]
     Active Substance: METHYLPREDNISOLONE HEMISUCCINATE
     Indication: PREMEDICATION
     Dosage: 20 MG;1 FLACON ; IN TOTAL
     Route: 042
     Dates: start: 20180718, end: 20180718
  2. CETIRIZINE ARROW FILM-COATED TABLET 10 MG [Suspect]
     Active Substance: CETIRIZINE HYDROCHLORIDE
     Indication: PREMEDICATION
     Dosage: IN TOTAL
     Route: 048
     Dates: start: 20180718, end: 20180718
  3. CORTANCYL [Suspect]
     Active Substance: PREDNISONE
     Indication: RHEUMATOID ARTHRITIS
     Dosage: IF NECESSARY
     Route: 048
     Dates: start: 20180601
  4. DOLIPRANE [Suspect]
     Active Substance: ACETAMINOPHEN
     Indication: PREMEDICATION
     Dosage: IN TOTAL
     Route: 048
     Dates: start: 20180718, end: 20180718
  5. METHYLPREDNISOLONE MYLAN           /00049604/ [Suspect]
     Active Substance: METHYLPREDNISOLONE HEMISUCCINATE
     Dosage: 40 MG : 2 FLACONS ; IN TOTAL
     Route: 042
     Dates: start: 20180718, end: 20180718
  6. GLUCOSE 5% BRAUN [Suspect]
     Active Substance: DEXTROSE
     Indication: PREMEDICATION
     Dosage: 1 POCHE
     Route: 042
     Dates: start: 20180718, end: 20180718
  7. MABTHERA [Suspect]
     Active Substance: RITUXIMAB
     Indication: RHEUMATOID ARTHRITIS
     Dosage: IN TOTAL
     Route: 058
     Dates: start: 20180718, end: 20180718

REACTIONS (2)
  - Pyrexia [Not Recovered/Not Resolved]
  - Pneumonia [Not Recovered/Not Resolved]

NARRATIVE: CASE EVENT DATE: 20180801
